FAERS Safety Report 18407441 (Version 1)
Quarter: 2020Q4

REPORT INFORMATION
  Report Type: Report from Study
  Country: None (occurrence: CL)
  Receive Date: 20201021
  Receipt Date: 20201021
  Transmission Date: 20210114
  Serious: Yes (Hospitalization)
  Sender: FDA-Public Use
  Company Number: CL-ABBVIE-20K-034-3611969-00

PATIENT
  Age: 61 Year
  Sex: Female

DRUGS (1)
  1. HUMIRA [Suspect]
     Active Substance: ADALIMUMAB
     Indication: CROHN^S DISEASE
     Route: 058
     Dates: start: 20190904

REACTIONS (8)
  - Vomiting [Unknown]
  - Adverse food reaction [Unknown]
  - Pain in extremity [Unknown]
  - Therapeutic response shortened [Not Recovered/Not Resolved]
  - Constipation [Unknown]
  - Abdominal pain upper [Recovered/Resolved]
  - Feeling abnormal [Unknown]
  - Arthralgia [Unknown]

NARRATIVE: CASE EVENT DATE: 202003
